FAERS Safety Report 8679151 (Version 2)
Quarter: 2014Q2

REPORT INFORMATION
  Report Type: Spontaneous
  Country: US (occurrence: US)
  Receive Date: 20120724
  Receipt Date: 20140613
  Transmission Date: 20141212
  Serious: No
  Sender: FDA-Public Use
  Company Number: US-PFIZER INC-2012175129

PATIENT
  Age: 14 Year
  Sex: Male
  Weight: 48.53 kg

DRUGS (7)
  1. GENOTROPIN [Suspect]
     Indication: DWARFISM
     Dosage: 2.4 MG, 1X/DAY
     Route: 058
     Dates: start: 201206
  2. GENOTROPIN [Suspect]
     Indication: GROWTH HORMONE DEFICIENCY
  3. MERCAPTOPURINE [Concomitant]
     Indication: CROHN^S DISEASE
     Dosage: UNK
  4. PENTASA [Concomitant]
     Dosage: UNK
  5. ALBUTEROL [Concomitant]
     Dosage: UNK (0.083 % INHAL SOLN)
  6. PREVACID [Concomitant]
     Dosage: UNK
  7. REMICADE [Concomitant]
     Dosage: UNK

REACTIONS (2)
  - Diarrhoea [Recovered/Resolved]
  - Abdominal discomfort [Recovered/Resolved]
